FAERS Safety Report 16254827 (Version 1)
Quarter: 2019Q2

REPORT INFORMATION
  Report Type: Spontaneous
  Country: FR (occurrence: FR)
  Receive Date: 20190430
  Receipt Date: 20190430
  Transmission Date: 20190711
  Serious: Yes (Death)
  Sender: FDA-Public Use
  Company Number: FR-TEVA-2019-FR-1044821

PATIENT
  Age: 87 Year
  Sex: Female
  Weight: 43 kg

DRUGS (8)
  1. VENTOLINE [Suspect]
     Active Substance: ALBUTEROL
     Indication: ASTHMA
     Dosage: 1 TO 6 DF/D
     Route: 055
  2. TARKA [Suspect]
     Active Substance: TRANDOLAPRIL\VERAPAMIL HYDROCHLORIDE
     Indication: HYPERTENSION
     Dosage: 1 DOSAGE FORMS DAILY; PROLONGED-RELEASE
     Route: 048
     Dates: start: 2016
  3. MONTELUKAST SODIQUE [Suspect]
     Active Substance: MONTELUKAST SODIUM
     Indication: ASTHMA
     Dosage: 10 MILLIGRAM DAILY;
     Route: 048
     Dates: end: 20190317
  4. BECOTIDE [Suspect]
     Active Substance: BECLOMETHASONE DIPROPIONATE
     Indication: ASTHMA
     Dosage: 2 DOSAGE FORMS DAILY;
     Route: 055
     Dates: start: 2016, end: 20190317
  5. COUMADINE 2 MG, COMPRIME SECABLE [Suspect]
     Active Substance: WARFARIN SODIUM
     Indication: ATRIAL FIBRILLATION
     Dosage: 2 DOSAGE FORMS DAILY; SCORED
     Route: 048
     Dates: start: 2016, end: 201902
  6. BRICANYL [Suspect]
     Active Substance: TERBUTALINE SULFATE
     Indication: ASTHMA
     Dosage: 2 DOSAGE FORMS DAILY;
     Route: 055
     Dates: end: 20190317
  7. PANTOPRAZOLE [Suspect]
     Active Substance: PANTOPRAZOLE
     Indication: OESOPHAGITIS
     Dosage: 1 DOSAGE FORMS DAILY;
     Route: 048
     Dates: end: 20190317
  8. LORAZEPAM. [Suspect]
     Active Substance: LORAZEPAM
     Indication: INSOMNIA
     Dosage: 1 MILLIGRAM DAILY;
     Route: 048
     Dates: start: 2016, end: 20190317

REACTIONS (1)
  - Squamous cell carcinoma of the oral cavity [Fatal]

NARRATIVE: CASE EVENT DATE: 201902
